FAERS Safety Report 5221221-4 (Version None)
Quarter: 2007Q1

REPORT INFORMATION
  Report Type: 
  Country: None (occurrence: None)
  Receive Date: 20061201
  Receipt Date: 20060830
  Transmission Date: 20070707
  Serious: No
  Sender: FDA-Public Use
  Company Number: 2006PV014750

PATIENT
  Age: 57 Year
  Sex: Male
  Weight: 116.1208 kg

DRUGS (6)
  1. BYETTA [Suspect]
     Indication: DIABETES MELLITUS NON-INSULIN-DEPENDENT
     Dosage: SEE IMAGE
     Route: 058
     Dates: start: 20060422, end: 20060521
  2. BYETTA [Suspect]
     Indication: DIABETES MELLITUS NON-INSULIN-DEPENDENT
     Dosage: SEE IMAGE
     Route: 058
     Dates: start: 20060522, end: 20060530
  3. BYETTA [Suspect]
     Indication: DIABETES MELLITUS NON-INSULIN-DEPENDENT
     Dosage: SEE IMAGE
     Route: 058
     Dates: start: 20060830
  4. GLUCOPHAGE [Concomitant]
  5. AVANDIA [Concomitant]
  6. PRANDIN [Concomitant]

REACTIONS (11)
  - BLOOD GLUCOSE DECREASED [None]
  - CORONARY ARTERY OCCLUSION [None]
  - DECREASED APPETITE [None]
  - DIZZINESS [None]
  - HYPERHIDROSIS [None]
  - HYPOAESTHESIA ORAL [None]
  - NAUSEA [None]
  - RETCHING [None]
  - VOMITING [None]
  - WEIGHT DECREASED [None]
  - WEIGHT INCREASED [None]
